FAERS Safety Report 5725294-1 (Version None)
Quarter: 2008Q2

REPORT INFORMATION
  Report Type: 
  Country: None (occurrence: None)
  Receive Date: 20080501
  Receipt Date: 20080423
  Transmission Date: 20081010
  Serious: Yes (Hospitalization, Other)
  Sender: FDA-Public Use
  Company Number: TR-ASTRAZENECA-2008AC00792

PATIENT
  Age: 75 Year
  Sex: Female

DRUGS (1)
  1. TAMOXIFEN CITRATE [Suspect]
     Indication: BREAST CANCER

REACTIONS (3)
  - ADENOCARCINOMA OF THE CERVIX [None]
  - ENDOMETRIAL CANCER [None]
  - GASTRIC CANCER [None]
